FAERS Safety Report 13502539 (Version 4)
Quarter: 2017Q3

REPORT INFORMATION
  Report Type: Report from Study
  Country: CO (occurrence: CO)
  Receive Date: 20170502
  Receipt Date: 20170930
  Transmission Date: 20171127
  Serious: Yes (Death, Life-Threatening, Hospitalization, Other)
  Sender: FDA-Public Use
  Company Number: CO-AMGEN-COLSL2017065018

PATIENT
  Age: 45 Year
  Sex: Male

DRUGS (1)
  1. KYPROLIS [Suspect]
     Active Substance: CARFILZOMIB
     Indication: PLASMA CELL MYELOMA
     Dosage: 60 MG, UNK
     Route: 042
     Dates: start: 20170328, end: 20170922

REACTIONS (6)
  - Bone pain [Not Recovered/Not Resolved]
  - Cerebrovascular accident [Fatal]
  - Hypokalaemia [Not Recovered/Not Resolved]
  - Discomfort [Not Recovered/Not Resolved]
  - Tachycardia [Recovered/Resolved]
  - Immune system disorder [Not Recovered/Not Resolved]

NARRATIVE: CASE EVENT DATE: 2017
